FAERS Safety Report 7895707-8 (Version None)
Quarter: 2011Q4

REPORT INFORMATION
  Report Type: 
  Country: None (occurrence: None)
  Receive Date: 20111106
  Receipt Date: 20110830
  Transmission Date: 20120403
  Serious: No
  Sender: FDA-Public Use
  Company Number: US-AMGEN-USASP2011044502

PATIENT
  Sex: Male

DRUGS (8)
  1. CORDRAN [Concomitant]
     Dosage: 4 MUG, UNK
  2. ERYTHROMYCIN W/SULFISOXAZOLE [Concomitant]
     Dosage: UNK
  3. CLOBEX [Concomitant]
     Dosage: 0.05 %, UNK
  4. ENBREL [Suspect]
     Indication: PRODUCT USED FOR UNKNOWN INDICATION
     Dosage: 50 MG, QWK
     Route: 058
  5. FLUOCINONIDE [Concomitant]
     Dosage: 0.05 %, UNK
  6. ALLOPURINOL [Concomitant]
     Dosage: 100 MG, UNK
  7. PRAVASTATIN [Concomitant]
     Dosage: 40 MG, UNK
  8. ASPIRIN [Concomitant]
     Dosage: 81 MG, UNK

REACTIONS (1)
  - INJECTION SITE HAEMATOMA [None]
